FAERS Safety Report 17582089 (Version 1)
Quarter: 2020Q1

REPORT INFORMATION
  Report Type: Spontaneous
  Country: US (occurrence: US)
  Receive Date: 20200323
  Receipt Date: 20200323
  Transmission Date: 20200409
  Serious: No
  Sender: FDA-Public Use
  Company Number: None

PATIENT
  Age: 35 Year
  Sex: Female

DRUGS (2)
  1. MYCOPHENOLATE  MOF TAB 500MG [Suspect]
     Active Substance: MYCOPHENOLATE MOFETIL
     Indication: SYSTEMIC LUPUS ERYTHEMATOSUS
     Route: 048
     Dates: start: 201904
  2. MYCOPHENOLATE  MOF TAB 500MG [Suspect]
     Active Substance: MYCOPHENOLATE MOFETIL
     Indication: GLOMERULAR VASCULAR DISORDER
     Route: 048
     Dates: start: 201904

REACTIONS (2)
  - Systemic lupus erythematosus [None]
  - Off label use [None]

NARRATIVE: CASE EVENT DATE: 20200323
